FAERS Safety Report 24840315 (Version 1)
Quarter: 2025Q1

REPORT INFORMATION
  Report Type: Spontaneous
  Country: US (occurrence: None)
  Receive Date: 20250113
  Receipt Date: 20250113
  Transmission Date: 20250408
  Serious: Yes (Hospitalization, Other)
  Sender: FDA-CTU
  Company Number: None

PATIENT
  Age: 32 Year
  Sex: Female
  Weight: 54 kg

DRUGS (5)
  1. MERCAPTOPURINE [Suspect]
     Active Substance: MERCAPTOPURINE
     Indication: Crohn^s disease
     Dates: start: 20240105, end: 20240606
  2. HUMIRA [Concomitant]
     Active Substance: ADALIMUMAB
  3. MERCAPTOPURINE [Concomitant]
     Active Substance: MERCAPTOPURINE
  4. VITAMINS [Concomitant]
     Active Substance: VITAMINS
  5. FOLIC ACID [Concomitant]
     Active Substance: FOLIC ACID

REACTIONS (3)
  - Cholestasis of pregnancy [None]
  - Maternal exposure during pregnancy [None]
  - Maternal exposure during pregnancy [None]

NARRATIVE: CASE EVENT DATE: 20240606
